FAERS Safety Report 5666776-0 (Version None)
Quarter: 2008Q1

REPORT INFORMATION
  Report Type: 
  Country: None (occurrence: None)
  Receive Date: 20080315
  Receipt Date: 20071226
  Transmission Date: 20080703
  Serious: No
  Sender: FDA-Public Use
  Company Number: US-ABBOTT-08P-163-0431732-00

PATIENT
  Sex: Female
  Weight: 81.266 kg

DRUGS (4)
  1. HUMIRA [Suspect]
     Indication: RHEUMATOID ARTHRITIS
     Route: 058
     Dates: start: 20061201, end: 20070101
  2. HUMIRA [Suspect]
     Dates: start: 20071221
  3. METHOTREXATE [Concomitant]
     Indication: RHEUMATOID ARTHRITIS
     Route: 058
     Dates: start: 20061101
  4. METHOTREXATE [Concomitant]
     Route: 050
     Dates: start: 20071001, end: 20071218

REACTIONS (3)
  - GASTROOESOPHAGEAL REFLUX DISEASE [None]
  - INFLUENZA [None]
  - NASOPHARYNGITIS [None]
